FAERS Safety Report 5778373-7 (Version None)
Quarter: 2008Q2

REPORT INFORMATION
  Report Type: 
  Country: None (occurrence: None)
  Receive Date: 20080618
  Receipt Date: 20080618
  Transmission Date: 20081010
  Serious: Yes (Hospitalization)
  Sender: FDA-Public Use
  Company Number: None

PATIENT
  Age: 56 Year
  Sex: Male

DRUGS (2)
  1. INSULIN [Suspect]
     Dosage: 10 UNITS BID SQ
     Route: 058
     Dates: start: 20070717, end: 20080607
  2. INSULIN [Suspect]
     Dosage: 30 UNITS AM SQ
     Route: 058
     Dates: start: 20070716, end: 20080607

REACTIONS (5)
  - DYSPNOEA [None]
  - FALL [None]
  - FEELING HOT [None]
  - HYPOGLYCAEMIA [None]
  - PALPITATIONS [None]
